FAERS Safety Report 9276944 (Version 3)
Quarter: 2013Q2

REPORT INFORMATION
  Report Type: Spontaneous
  Country: US (occurrence: US)
  Receive Date: 20130507
  Receipt Date: 20130530
  Transmission Date: 20140414
  Serious: No
  Sender: FDA-Public Use
  Company Number: US-009507513-1304USA017694

PATIENT
  Age: 35 Year
  Sex: Female

DRUGS (2)
  1. PUREGON PEN [Suspect]
     Indication: ASSISTED FERTILISATION
     Dosage: UNK
     Dates: start: 201302
  2. FOLLISTIM AQ [Concomitant]
     Dosage: 75 IU, QD FOR 7 DAYS
     Route: 058
     Dates: start: 201302

REACTIONS (3)
  - Incorrect dose administered by device [Unknown]
  - Device malfunction [Unknown]
  - No adverse event [Unknown]
